FAERS Safety Report 5961838-2 (Version None)
Quarter: 2008Q4

REPORT INFORMATION
  Report Type: 
  Country: None (occurrence: None)
  Receive Date: 20081121
  Receipt Date: 20080204
  Transmission Date: 20090506
  Serious: No
  Sender: FDA-Public Use
  Company Number: US-BRISTOL-MYERS SQUIBB COMPANY-14063416

PATIENT
  Age: 75 Year
  Sex: Male
  Weight: 86 kg

DRUGS (3)
  1. AVALIDE [Suspect]
     Indication: HYPERTENSION
     Dosage: DOSE-1/2 TAB EVERY OTHER DAY.INITIALLY AVALIDE 300/12.5MG DAILY,THEN DECREASED TO EVERY OTHER DAY.
     Route: 048
  2. ACIPHEX [Concomitant]
  3. LIPITOR [Concomitant]

REACTIONS (1)
  - BLOOD PRESSURE INCREASED [None]
